FAERS Safety Report 10239435 (Version 2)
Quarter: 2014Q2

REPORT INFORMATION
  Report Type: Spontaneous
  Country: DE (occurrence: DE)
  Receive Date: 20140616
  Receipt Date: 20140616
  Transmission Date: 20141212
  Serious: Yes (Hospitalization)
  Sender: FDA-Public Use
  Company Number: DE-ABBVIE-14P-062-1205140-00

PATIENT
  Sex: Female
  Weight: 59 kg

DRUGS (1)
  1. HUMIRA [Suspect]
     Indication: CROHN^S DISEASE
     Dosage: LONGER THAN EVERY OTHER WEEK
     Route: 058
     Dates: start: 200804, end: 201004

REACTIONS (5)
  - Lipofibroma [Recovered/Resolved]
  - Fatigue [Recovering/Resolving]
  - Arthropathy [Recovered/Resolved]
  - Corneal opacity [Not Recovered/Not Resolved]
  - Crohn^s disease [Recovered/Resolved]
